FAERS Safety Report 15409050 (Version 1)
Quarter: 2018Q3

REPORT INFORMATION
  Report Type: Report from Study
  Country: BD (occurrence: BD)
  Receive Date: 20180920
  Receipt Date: 20180920
  Transmission Date: 20181010
  Serious: Yes (Hospitalization, Other)
  Sender: FDA-Public Use
  Company Number: BD-SA-2018SA240237

PATIENT
  Age: 62 Year
  Sex: Male

DRUGS (1)
  1. INSULIN GLARGINE [Suspect]
     Active Substance: INSULIN GLARGINE
     Dosage: UNK, UNK
     Route: 065
     Dates: start: 20150401

REACTIONS (19)
  - Condition aggravated [Unknown]
  - Discomfort [Unknown]
  - Cardiac disorder [Unknown]
  - Tremor [Unknown]
  - Hypoglycaemia [Unknown]
  - Flatulence [Unknown]
  - Hunger [Unknown]
  - Constipation [Unknown]
  - Diabetes mellitus inadequate control [Unknown]
  - Blood glucose abnormal [Unknown]
  - Hepatic fibrosis [Unknown]
  - Pyrexia [Unknown]
  - Haemoglobin decreased [Unknown]
  - Red blood cell sedimentation rate increased [Unknown]
  - Liver disorder [Unknown]
  - Lung disorder [Unknown]
  - Blood glucose decreased [Unknown]
  - Back injury [Unknown]
  - Weight increased [Unknown]
